FAERS Safety Report 4516117-7 (Version None)
Quarter: 2004Q4

REPORT INFORMATION
  Report Type: 
  Country: None (occurrence: None)
  Receive Date: 20041129
  Receipt Date: 20041118
  Transmission Date: 20050328
  Serious: Yes (Death, Hospitalization)
  Sender: FDA-Public Use
  Company Number: 2004-11-1023

PATIENT
  Age: 41 Year
  Sex: Male
  Weight: 65 kg

DRUGS (5)
  1. VIRAFERONPEG [Suspect]
     Indication: HEPATITIS C
     Dosage: 1.5 UG/KG/QWK SUBCUTANEO
     Route: 058
     Dates: start: 20040201
  2. REBETOL [Suspect]
     Indication: HEPATITIS C
     Dosage: 800 MG QD ORAL
     Route: 048
     Dates: start: 20040201
  3. DOLIPRANE [Concomitant]
  4. LEXOMIL (BROMAZEPAM) [Concomitant]
  5. STILNOX [Concomitant]

REACTIONS (3)
  - CARDIAC FAILURE [None]
  - MYOCARDITIS [None]
  - SEPTIC SHOCK [None]
